FAERS Safety Report 17345504 (Version 1)
Quarter: 2020Q1

REPORT INFORMATION
  Report Type: Report from Study
  Country: AR (occurrence: AR)
  Receive Date: 20200129
  Receipt Date: 20200129
  Transmission Date: 20200409
  Serious: Yes (Hospitalization, Other)
  Sender: FDA-Public Use
  Company Number: NVSC2020AR007683

PATIENT
  Age: 60 Year
  Sex: Female

DRUGS (5)
  1. OMEPRAZOLE. [Concomitant]
     Active Substance: OMEPRAZOLE
     Indication: PRODUCT USED FOR UNKNOWN INDICATION
     Route: 065
  2. INSULINE [Concomitant]
     Active Substance: INSULIN NOS
     Indication: PRODUCT USED FOR UNKNOWN INDICATION
     Route: 065
  3. LUCENTIS [Suspect]
     Active Substance: RANIBIZUMAB
     Dosage: 1 DF
     Route: 065
     Dates: start: 20191205, end: 20191205
  4. LUCENTIS [Suspect]
     Active Substance: RANIBIZUMAB
     Indication: DIABETIC RETINAL OEDEMA
     Dosage: 1 DF
     Route: 065
     Dates: start: 20171120
  5. METFORMIN [Suspect]
     Active Substance: METFORMIN HYDROCHLORIDE
     Indication: BLOOD CHOLESTEROL INCREASED
     Route: 065

REACTIONS (8)
  - Lenticular opacities [Unknown]
  - Eye haemorrhage [Unknown]
  - Eye disorder [Not Recovered/Not Resolved]
  - Low density lipoprotein increased [Unknown]
  - Retinopathy [Not Recovered/Not Resolved]
  - Diabetic retinopathy [Recovering/Resolving]
  - Cataract [Unknown]
  - Conjunctivitis viral [Unknown]

NARRATIVE: CASE EVENT DATE: 201908
